FAERS Safety Report 21775193 (Version 1)
Quarter: 2022Q4

REPORT INFORMATION
  Report Type: Report from Study
  Country: US (occurrence: US)
  Receive Date: 20221225
  Receipt Date: 20221225
  Transmission Date: 20230113
  Serious: Yes (Hospitalization)
  Sender: FDA-Public Use
  Company Number: US-ABBVIE-4247661

PATIENT
  Sex: Female

DRUGS (13)
  1. DUOPA [Suspect]
     Active Substance: CARBIDOPA\LEVODOPA
     Indication: Product used for unknown indication
     Route: 050
     Dates: start: 20210219
  2. DUOPA [Suspect]
     Active Substance: CARBIDOPA\LEVODOPA
     Route: 050
  3. SYNTHROID [Concomitant]
     Active Substance: LEVOTHYROXINE SODIUM
     Indication: Product used for unknown indication
     Dosage: G-TUBE
  4. LORAZEPAM 0.5 Milligram [Concomitant]
     Indication: Product used for unknown indication
     Dosage: G-TUBE
  5. SENNA 8.6 Milligram [Concomitant]
     Indication: Product used for unknown indication
     Dosage: G-TUBE
  6. CLONIDINE [Concomitant]
     Active Substance: CLONIDINE
     Indication: Product used for unknown indication
     Dosage: 0.1 MG/24 HR
     Route: 061
  7. SEROQUEL XR 50 Milligram [Concomitant]
     Indication: Product used for unknown indication
     Dosage: G-TUBE
  8. DIETARY SUPPLEMENT [Concomitant]
     Active Substance: DIETARY SUPPLEMENT
     Indication: Product used for unknown indication
     Dosage: 1.5 CAL 0.06 G-1.5 G-TUBE
  9. ZOLOFT 100 Milligram [Concomitant]
     Indication: Product used for unknown indication
     Dosage: G-TUBE
  10. SINEMET [Concomitant]
     Active Substance: CARBIDOPA\LEVODOPA
     Indication: Product used for unknown indication
     Dosage: 25-100MG G-TUBE
  11. SEROQUEL 100 Milligram [Concomitant]
     Indication: Product used for unknown indication
     Dosage: G-TUBE
  12. MELATONIN 3 Milligram [Concomitant]
     Indication: Product used for unknown indication
     Dosage: G-TUBE
  13. MIRALAX [Concomitant]
     Active Substance: POLYETHYLENE GLYCOL 3350
     Indication: Product used for unknown indication
     Dosage: 17G/DOSE G-TUBE

REACTIONS (1)
  - Oesophagitis [Unknown]
